FAERS Safety Report 9370156 (Version 1)
Quarter: 2013Q2

REPORT INFORMATION
  Report Type: Spontaneous
  Country: FR (occurrence: FR)
  Receive Date: 20130626
  Receipt Date: 20130626
  Transmission Date: 20140414
  Serious: Yes (Death, Hospitalization)
  Sender: FDA-Public Use
  Company Number: FR-BAYER-2013-077348

PATIENT
  Age: 78 Year
  Sex: Female

DRUGS (9)
  1. XARELTO [Suspect]
     Dosage: 20 MG, QD
     Route: 048
     Dates: start: 2012
  2. CIFLOX [Suspect]
     Indication: INFECTION
     Dosage: UNK
     Route: 048
     Dates: start: 20130606
  3. CIFLOX [Suspect]
     Indication: ARTHRALGIA
  4. COLCHICINE [Suspect]
     Indication: INFECTION
     Dosage: UNK
     Route: 048
     Dates: start: 20130606
  5. COLCHICINE [Suspect]
     Indication: ARTHRALGIA
  6. BISOPROLOL [Concomitant]
  7. RAMIPRIL [Concomitant]
  8. SIMVASTATIN [Concomitant]
  9. PANTOPRAZOLE [Concomitant]

REACTIONS (3)
  - Haematoma [Fatal]
  - Subdural haematoma [Fatal]
  - Injection site haemorrhage [Fatal]
